FAERS Safety Report 12872806 (Version 4)
Quarter: 2016Q4

REPORT INFORMATION
  Report Type: Report from Study
  Country: KR (occurrence: KR)
  Receive Date: 20161021
  Receipt Date: 20161123
  Transmission Date: 20170207
  Serious: Yes (Death)
  Sender: FDA-Public Use
  Company Number: KR-PFIZER INC-2016488142

PATIENT
  Age: 75 Year
  Sex: Male
  Weight: 60 kg

DRUGS (11)
  1. TRIDOL [Concomitant]
     Active Substance: TRAMADOL HYDROCHLORIDE
     Indication: PARAESTHESIA
     Dosage: 50 MG, 1X/DAY
     Route: 048
     Dates: start: 20161006
  2. MSB0010718C [Suspect]
     Active Substance: AVELUMAB
     Indication: RENAL CELL CARCINOMA
     Dosage: 596 MG, EVERY 2 WEEKS
     Route: 042
     Dates: start: 20161011
  3. INLYTA [Suspect]
     Active Substance: AXITINIB
     Indication: RENAL CELL CARCINOMA
     Dosage: 5 MG, TWICE DAILY CONTINUOUS
     Route: 048
     Dates: start: 20161011, end: 20161012
  4. CELEBREX [Concomitant]
     Active Substance: CELECOXIB
     Indication: PARAESTHESIA
     Dosage: 200 MG, AS NEEDED
     Route: 048
     Dates: start: 20161010
  5. DOXAZOSIN [Concomitant]
     Active Substance: DOXAZOSIN\DOXAZOSIN MESYLATE
     Indication: HYPERTENSION
  6. DOXAZOSIN [Concomitant]
     Active Substance: DOXAZOSIN\DOXAZOSIN MESYLATE
     Indication: BENIGN PROSTATIC HYPERPLASIA
     Dosage: 4 MG, 1X/DAY CONTINUOUS
     Route: 048
     Dates: start: 2014
  7. NORVASC [Concomitant]
     Active Substance: AMLODIPINE BESYLATE
     Indication: HYPERTENSION
     Dosage: 2.5 MG, DAILY CONTINUOUS
     Route: 048
     Dates: start: 20161012, end: 20161013
  8. TORAREN [Concomitant]
     Indication: HEADACHE
     Dosage: 75 MG, ONCE
     Route: 030
     Dates: start: 20161016, end: 20161016
  9. INLYTA [Suspect]
     Active Substance: AXITINIB
     Dosage: 3 MG, TWICE DAILY CONTINUOUS
     Route: 048
     Dates: start: 20161014
  10. NORVASC [Concomitant]
     Active Substance: AMLODIPINE BESYLATE
     Dosage: 5 MG, DAILY CONTINUOUS
     Route: 048
     Dates: start: 20161014
  11. PERDIPINE [Concomitant]
     Active Substance: NICARDIPINE HYDROCHLORIDE
     Indication: HYPERTENSION
     Dosage: 2 MG, ONCE
     Route: 042
     Dates: start: 20161012, end: 20161012

REACTIONS (1)
  - Death [Fatal]

NARRATIVE: CASE EVENT DATE: 20161018
